FAERS Safety Report 21090047 (Version 2)
Quarter: 2022Q3

REPORT INFORMATION
  Report Type: Spontaneous
  Country: US (occurrence: US)
  Receive Date: 20220715
  Receipt Date: 20220728
  Transmission Date: 20221027
  Serious: Yes (Hospitalization, Other)
  Sender: FDA-Public Use
  Company Number: US-009507513-2207USA003478

PATIENT
  Sex: Female

DRUGS (2)
  1. DIFICID [Suspect]
     Active Substance: FIDAXOMICIN
     Dosage: ONCE A DAY
     Route: 048
     Dates: start: 20220709
  2. DIFICID [Suspect]
     Active Substance: FIDAXOMICIN
     Dosage: ONCE A DAY
     Route: 048
     Dates: start: 20220710

REACTIONS (4)
  - Pulmonary oedema [Unknown]
  - Product dose omission issue [Unknown]
  - Product use issue [Unknown]
  - Product use issue [Unknown]

NARRATIVE: CASE EVENT DATE: 20220709
